FAERS Safety Report 12249994 (Version 1)
Quarter: 2016Q2

REPORT INFORMATION
  Report Type: Spontaneous
  Country: FR (occurrence: FR)
  Receive Date: 20160408
  Receipt Date: 20160408
  Transmission Date: 20160815
  Serious: Yes (Other)
  Sender: FDA-Public Use
  Company Number: FR-REGENERON PHARMACEUTICALS, INC.-2016-14883

PATIENT

DRUGS (2)
  1. EYLEA [Suspect]
     Active Substance: AFLIBERCEPT
     Indication: PRODUCT USED FOR UNKNOWN INDICATION
     Dosage: UNK, ONCE (SECOND INJECTION)
     Dates: start: 201603, end: 201603
  2. EYLEA [Suspect]
     Active Substance: AFLIBERCEPT
     Dosage: UNK
     Route: 031

REACTIONS (7)
  - Hyperhidrosis [Unknown]
  - Visual impairment [Unknown]
  - Loss of consciousness [Unknown]
  - Headache [Unknown]
  - Tremor [Unknown]
  - Nausea [Unknown]
  - Hypoaesthesia eye [Not Recovered/Not Resolved]

NARRATIVE: CASE EVENT DATE: 201603
